FAERS Safety Report 6170376-6 (Version None)
Quarter: 2009Q2

REPORT INFORMATION
  Report Type: 
  Country: None (occurrence: None)
  Receive Date: 20090427
  Receipt Date: 20090427
  Transmission Date: 20091009
  Serious: Yes (Life-Threatening, Hospitalization)
  Sender: FDA-Public Use
  Company Number: None

PATIENT
  Age: 62 Year
  Sex: Female
  Weight: 57.6 kg

DRUGS (1)
  1. HYDROCHLOROTHIAZIDE [Suspect]
     Indication: HYPERTENSION
     Dosage: 25MG PO QD, AT HOME
     Route: 048

REACTIONS (5)
  - CONVULSION [None]
  - DIARRHOEA [None]
  - HYPONATRAEMIA [None]
  - NAUSEA [None]
  - VOMITING [None]
